FAERS Safety Report 6923758-6 (Version None)
Quarter: 2010Q3

REPORT INFORMATION
  Report Type: 
  Country: None (occurrence: None)
  Receive Date: 20100813
  Receipt Date: 20100809
  Transmission Date: 20110219
  Serious: Yes (Death)
  Sender: FDA-Public Use
  Company Number: AU-JNJFOC-20100800018

PATIENT
  Age: 85 Year
  Sex: Male

DRUGS (2)
  1. DURAGESIC-100 [Suspect]
     Indication: PRODUCT USED FOR UNKNOWN INDICATION
     Route: 062
  2. MORPHINE [Suspect]
     Indication: SLEEP DISORDER THERAPY
     Route: 065

REACTIONS (3)
  - LEUKAEMIA [None]
  - MEMORY IMPAIRMENT [None]
  - SOMNOLENCE [None]
